FAERS Safety Report 17135955 (Version 1)
Quarter: 2019Q4

REPORT INFORMATION
  Report Type: Report from Study
  Country: US (occurrence: US)
  Receive Date: 20191210
  Receipt Date: 20191210
  Transmission Date: 20200122
  Serious: Yes (Other)
  Sender: FDA-Public Use
  Company Number: US-JNJFOC-20191000662

PATIENT
  Sex: Female

DRUGS (1)
  1. SPRAVATO [Suspect]
     Active Substance: ESKETAMINE
     Indication: PRODUCT USED FOR UNKNOWN INDICATION

REACTIONS (10)
  - Dizziness [Unknown]
  - Fear [Unknown]
  - Hypoaesthesia [Unknown]
  - Oral discomfort [Unknown]
  - Crying [Unknown]
  - Tunnel vision [Unknown]
  - Euphoric mood [Unknown]
  - Derealisation [Unknown]
  - Taste disorder [Unknown]
  - Feeling abnormal [Unknown]
